FAERS Safety Report 7953360-9 (Version None)
Quarter: 2011Q4

REPORT INFORMATION
  Report Type: 
  Country: None (occurrence: None)
  Receive Date: 20111202
  Receipt Date: 20111128
  Transmission Date: 20120403
  Serious: Yes (Hospitalization)
  Sender: FDA-Public Use
  Company Number: US-BIOGENIDEC-2011BI026093

PATIENT
  Age: 63 Year
  Sex: Female

DRUGS (11)
  1. AVONEX [Suspect]
     Route: 030
     Dates: start: 20100301, end: 20100601
  2. AVONEX [Suspect]
     Route: 030
  3. BP MEDICATION (NOS) [Concomitant]
     Indication: HYPERTENSION
  4. LOPRESSOR [Concomitant]
     Indication: HYPERTENSION
     Route: 048
     Dates: start: 19840101, end: 20110101
  5. AVONEX [Suspect]
     Route: 030
     Dates: start: 20071001, end: 20071201
  6. GERITOL [Concomitant]
     Indication: PRODUCT USED FOR UNKNOWN INDICATION
  7. LISINOPRIL [Concomitant]
     Indication: HYPERTENSION
     Dates: start: 20110101
  8. FLUID PILLS (NOS) [Concomitant]
     Indication: PRODUCT USED FOR UNKNOWN INDICATION
  9. METOPROLOL [Concomitant]
     Indication: HYPERTENSION
     Route: 048
  10. AVONEX [Suspect]
     Indication: MULTIPLE SCLEROSIS
     Route: 030
     Dates: start: 20001115
  11. IBUPROFEN (ADVIL) [Concomitant]
     Indication: PRODUCT USED FOR UNKNOWN INDICATION

REACTIONS (10)
  - MOBILITY DECREASED [None]
  - COORDINATION ABNORMAL [None]
  - DEHYDRATION [None]
  - PYREXIA [None]
  - DECUBITUS ULCER [None]
  - WEIGHT DECREASED [None]
  - NAUSEA [None]
  - RED BLOOD CELL COUNT DECREASED [None]
  - CYSTITIS [None]
  - DEPRESSION [None]
